FAERS Safety Report 4948531-X (Version None)
Quarter: 2006Q1

REPORT INFORMATION
  Report Type: 
  Country: None (occurrence: None)
  Receive Date: 20060320
  Receipt Date: 20050930
  Transmission Date: 20060701
  Serious: Yes (Hospitalization, Other)
  Sender: FDA-Public Use
  Company Number: US-MERCK-0510USA01446

PATIENT
  Age: 37 Year
  Sex: Male

DRUGS (1)
  1. VIOXX [Suspect]
     Route: 048
     Dates: start: 19990520, end: 20040930

REACTIONS (4)
  - ANGINA PECTORIS [None]
  - DIVERTICULITIS [None]
  - MYOCARDIAL INFARCTION [None]
  - RADICULOPATHY [None]
